FAERS Safety Report 12863758 (Version 2)
Quarter: 2017Q1

REPORT INFORMATION
  Report Type: Spontaneous
  Country: US (occurrence: US)
  Receive Date: 20161019
  Receipt Date: 20170130
  Transmission Date: 20170428
  Serious: No
  Sender: FDA-Public Use
  Company Number: PHEH2016US026939

PATIENT
  Age: 78 Year
  Sex: Male
  Weight: 61.7 kg

DRUGS (1)
  1. AFINITOR [Suspect]
     Active Substance: EVEROLIMUS
     Indication: HEPATIC NEOPLASM
     Dosage: 2.5 MG, QD
     Route: 048
     Dates: start: 20160822

REACTIONS (4)
  - Product use issue [Unknown]
  - Back pain [Unknown]
  - Chest pain [Unknown]
  - Dyspnoea [Unknown]

NARRATIVE: CASE EVENT DATE: 20161007
